FAERS Safety Report 24705219 (Version 1)
Quarter: 2024Q4

REPORT INFORMATION
  Report Type: Spontaneous
  Country: US (occurrence: US)
  Receive Date: 20241206
  Receipt Date: 20241206
  Transmission Date: 20250114
  Serious: No
  Sender: BAUSCH AND LOMB
  Company Number: US-BAUSCH-BL-2024-017502

PATIENT
  Sex: Female

DRUGS (3)
  1. WELLBUTRIN SR [Suspect]
     Active Substance: BUPROPION HYDROCHLORIDE
     Indication: Depression
     Route: 065
  2. LAMICTAL [Concomitant]
     Active Substance: LAMOTRIGINE
     Indication: Mood swings
     Dosage: 1 TABLET TWICE DAILY IN THE MORNING AND EVENING
  3. LAMICTAL [Concomitant]
     Active Substance: LAMOTRIGINE
     Dosage: 1 TABLET IN THE MORNING AND 1 AND A HALF TABLETS IN THE EVENING

REACTIONS (2)
  - Adverse drug reaction [Unknown]
  - Drug ineffective [Unknown]
